FAERS Safety Report 12551731 (Version 2)
Quarter: 2016Q3

REPORT INFORMATION
  Report Type: Report from Study
  Country: NL (occurrence: NL)
  Receive Date: 20160713
  Receipt Date: 20160812
  Transmission Date: 20161109
  Serious: Yes (Death)
  Sender: FDA-Public Use
  Company Number: PHHY2016NL095538

PATIENT
  Sex: Female

DRUGS (4)
  1. ZOMETA [Suspect]
     Active Substance: ZOLEDRONIC ACID
     Dosage: 4 MG/100 ML FOR EVERY  4 TO 6 WEEKS
     Route: 042
     Dates: start: 20160428
  2. ZOMETA [Suspect]
     Active Substance: ZOLEDRONIC ACID
     Indication: BREAST CANCER METASTATIC
     Dosage: 4 MG/100 ML FOR EVERY  4 TO 6 WEEKS
     Route: 042
  3. ZOMETA [Suspect]
     Active Substance: ZOLEDRONIC ACID
     Dosage: 4 MG/100 ML FOR EVERY  4 TO 6 WEEKS
     Route: 042
     Dates: start: 20160317
  4. ZOMETA [Suspect]
     Active Substance: ZOLEDRONIC ACID
     Dosage: 4 MG/100 ML FOR EVERY  4 TO 6 WEEKS
     Route: 042
     Dates: start: 20160609

REACTIONS (3)
  - Breast cancer metastatic [Fatal]
  - Inappropriate schedule of drug administration [Unknown]
  - Malignant neoplasm progression [Fatal]
